FAERS Safety Report 8252321-2 (Version None)
Quarter: 2012Q2

REPORT INFORMATION
  Report Type: 
  Country: None (occurrence: None)
  Receive Date: 20120402
  Receipt Date: 20110601
  Transmission Date: 20120825
  Serious: No
  Sender: FDA-Public Use
  Company Number: US-ABBOTT-11P-163-0804556-00

PATIENT
  Sex: Male

DRUGS (1)
  1. TESTOSTERONE [Suspect]
     Indication: PRODUCT USED FOR UNKNOWN INDICATION
     Dosage: DAILY DOSE:  UNKNOWN
     Route: 062

REACTIONS (4)
  - DRUG INEFFECTIVE [None]
  - PAIN [None]
  - BLOOD TESTOSTERONE DECREASED [None]
  - PRODUCT QUALITY ISSUE [None]
